FAERS Safety Report 9321461 (Version 2)
Quarter: 2013Q3

REPORT INFORMATION
  Report Type: Spontaneous
  Country: US (occurrence: None)
  Receive Date: 20130528
  Receipt Date: 20130705
  Transmission Date: 20140515
  Serious: Yes (Hospitalization)
  Sender: FDA-Public Use
  Company Number: ACO_36006_2013

PATIENT
  Age: 56 Year
  Sex: Male
  Weight: 80.7 kg

DRUGS (5)
  1. AMPYRA (DALFAMPRIDINE) TABLET, 10MG [Suspect]
     Indication: MUSCULAR WEAKNESS
     Route: 048
     Dates: start: 20130314, end: 201305
  2. AMPYRA (DALFAMPRIDINE) TABLET, 10MG [Suspect]
     Indication: GAIT DISTURBANCE
     Route: 048
     Dates: start: 20130314, end: 201305
  3. AMPYRA (DALFAMPRIDINE) TABLET, 10MG [Suspect]
     Indication: MULTIPLE SCLEROSIS
     Route: 048
     Dates: start: 20130314, end: 201305
  4. AVONEX [Suspect]
     Route: 030
     Dates: start: 2011, end: 201304
  5. BACLOFEN (BACLOFEN) [Concomitant]

REACTIONS (2)
  - Myocardial infarction [None]
  - Rash vesicular [None]
